FAERS Safety Report 6213815-4 (Version None)
Quarter: 2009Q2

REPORT INFORMATION
  Report Type: 
  Country: None (occurrence: None)
  Receive Date: 20090602
  Receipt Date: 20090523
  Transmission Date: 20091009
  Serious: Yes (Hospitalization, Other)
  Sender: FDA-Public Use
  Company Number: 2009US000852

PATIENT
  Age: 70 Year
  Sex: Female

DRUGS (15)
  1. LEXISCAN [Suspect]
     Indication: SCAN MYOCARDIAL PERFUSION
     Dosage: 0.4 MG, TOTAL DOSE, IV NOS
     Route: 042
     Dates: start: 20090309, end: 20090309
  2. POTASSIUM CHLORIDE [Concomitant]
  3. TRILEPTAL [Concomitant]
  4. MINIPRESS [Concomitant]
  5. TOPROL-XL [Concomitant]
  6. TRICOR [Concomitant]
  7. SOTALOL HCL [Concomitant]
  8. BUMEX [Concomitant]
  9. ZOCOR [Concomitant]
  10. PREVACID [Concomitant]
  11. COUMADIN [Concomitant]
  12. STARLIX [Concomitant]
  13. CALCIUM WITH VITAMIN D (COLECALCIFEROL) [Concomitant]
  14. ALDACTONE [Concomitant]
  15. OTHER ANTI-ASTHMATICS, INHALANTS [Concomitant]

REACTIONS (8)
  - ACUTE PRERENAL FAILURE [None]
  - ANAEMIA [None]
  - CARDIAC FAILURE CONGESTIVE [None]
  - CONDUCTION DISORDER [None]
  - ELECTROCARDIOGRAM ST SEGMENT ABNORMAL [None]
  - RESPIRATORY FAILURE [None]
  - SINUS ARRHYTHMIA [None]
  - SUPRAVENTRICULAR EXTRASYSTOLES [None]
